FAERS Safety Report 9752583 (Version 1)
Quarter: 2013Q4

REPORT INFORMATION
  Report Type: Spontaneous
  Country: US (occurrence: US)
  Receive Date: 20131213
  Receipt Date: 20131213
  Transmission Date: 20140711
  Serious: Yes (Hospitalization, Disabling, Other)
  Sender: FDA-Public Use
  Company Number: US-ELI_LILLY_AND_COMPANY-US201312001344

PATIENT
  Sex: Male

DRUGS (4)
  1. HUMALOG LISPRO [Suspect]
     Indication: TYPE 2 DIABETES MELLITUS
     Dosage: 12 U, TID
     Route: 065
  2. HUMALOG LISPRO [Suspect]
     Dosage: 20 U, TID
     Route: 065
  3. LANTUS [Concomitant]
  4. LEVEMIR [Concomitant]

REACTIONS (7)
  - Myasthenia gravis [Unknown]
  - Muscular dystrophy [Unknown]
  - Blood glucose increased [Unknown]
  - Vision blurred [Unknown]
  - Aphonia [Unknown]
  - Injection site bruising [Unknown]
  - Incorrect dose administered [Unknown]
